FAERS Safety Report 16440247 (Version 2)
Quarter: 2019Q2

REPORT INFORMATION
  Report Type: Report from Study
  Country: US (occurrence: US)
  Receive Date: 20190617
  Receipt Date: 20190624
  Transmission Date: 20190711
  Serious: Yes (Hospitalization)
  Sender: FDA-Public Use
  Company Number: US-BAUSCH-BL-2019-017528

PATIENT
  Age: 68 Year
  Sex: Male

DRUGS (2)
  1. LOTEMAX [Suspect]
     Active Substance: LOTEPREDNOL ETABONATE
     Indication: PRODUCT USED FOR UNKNOWN INDICATION
     Dosage: THERAPY STARTED SEVERAL YEARS BEFORE REPORTING TIME
     Route: 065
  2. TIMOPTIC [Suspect]
     Active Substance: TIMOLOL MALEATE
     Indication: PRODUCT USED FOR UNKNOWN INDICATION
     Dosage: THERAPY STARTED SEVERAL YEARS BEFORE REPORTING TIME, USED IN THE RIGHT EYE
     Route: 065

REACTIONS (1)
  - Blindness unilateral [Recovering/Resolving]
